FAERS Safety Report 23533652 (Version 1)
Quarter: 2024Q1

REPORT INFORMATION
  Report Type: Spontaneous
  Country: US (occurrence: US)
  Receive Date: 20240216
  Receipt Date: 20240216
  Transmission Date: 20240409
  Serious: Yes (unspecified)
  Sender: FDA-Public Use
  Company Number: US-California Department of Public Health-2153314

PATIENT
  Age: 3 Month
  Sex: Female
  Weight: 2.99 kg

DRUGS (8)
  1. BABYBIG [Suspect]
     Active Substance: HUMAN BOTULINUM NEUROTOXIN A/B IMMUNE GLOBULIN
     Route: 041
     Dates: start: 20231120, end: 20231120
  2. CAFFEINE [Concomitant]
     Active Substance: CAFFEINE
     Route: 041
     Dates: start: 20240105, end: 20240122
  3. ocular lubricant, ophthalmic ointment [Concomitant]
     Route: 047
  4. ZINC OXIDE [Concomitant]
     Active Substance: ZINC OXIDE
     Route: 061
  5. VITAMINS [Concomitant]
     Active Substance: VITAMINS
  6. AQUAPHOR [Concomitant]
     Active Substance: PETROLATUM
     Route: 061
  7. LEVALBUTEROL [Concomitant]
     Active Substance: LEVALBUTEROL
     Route: 045
     Dates: start: 20231224
  8. TOBRAMYCIN [Concomitant]
     Active Substance: TOBRAMYCIN
     Dates: end: 20231212

REACTIONS (3)
  - Hydrocephalus [Unknown]
  - Oxygen saturation decreased [Recovering/Resolving]
  - Pseudomonas infection [Recovered/Resolved]

NARRATIVE: CASE EVENT DATE: 20231210
